FAERS Safety Report 24303267 (Version 1)
Quarter: 2024Q3

REPORT INFORMATION
  Report Type: Spontaneous
  Country: BR (occurrence: None)
  Receive Date: 20240910
  Receipt Date: 20240910
  Transmission Date: 20241017
  Serious: Yes (Other)
  Sender: ASTRAZENECA
  Company Number: 2024A202875

PATIENT
  Sex: Female

DRUGS (10)
  1. XIGDUO XR [Suspect]
     Active Substance: DAPAGLIFLOZIN PROPANEDIOL\METFORMIN HYDROCHLORIDE
     Indication: Glucose tolerance impaired
     Dosage: ONCE
     Route: 048
  2. XIGDUO XR [Suspect]
     Active Substance: DAPAGLIFLOZIN PROPANEDIOL\METFORMIN HYDROCHLORIDE
     Indication: Glucose tolerance impaired
     Dosage: TWO TIMES A DAY
     Route: 048
  3. DAFLON [Concomitant]
     Indication: Collateral circulation
  4. DAFLON [Concomitant]
     Indication: Varicose vein
  5. HYDROCHLOROTHIAZIDE [Concomitant]
     Active Substance: HYDROCHLOROTHIAZIDE
  6. ALDACTONE [Concomitant]
     Active Substance: SPIRONOLACTONE
  7. LOSARTAN POTASSIUM [Concomitant]
     Active Substance: LOSARTAN POTASSIUM
  8. DILTIAZEM [Concomitant]
     Active Substance: DILTIAZEM
  9. SIMVASTATIN [Concomitant]
     Active Substance: SIMVASTATIN
  10. CALCIUM [Concomitant]
     Active Substance: CALCIUM

REACTIONS (5)
  - Osteoarthritis [Unknown]
  - Weight decreased [Recovered/Resolved]
  - Dysentery [Unknown]
  - Osteoporosis [Unknown]
  - Off label use [Recovered/Resolved]
